FAERS Safety Report 24619003 (Version 1)
Quarter: 2024Q4

REPORT INFORMATION
  Report Type: Spontaneous
  Country: US (occurrence: US)
  Receive Date: 20241114
  Receipt Date: 20241114
  Transmission Date: 20250114
  Serious: No
  Sender: CURRAX PHARMACEUTICALS
  Company Number: US-CURRAX PHARMACEUTICALS LLC-US-2023CUR003757

PATIENT
  Sex: Female

DRUGS (7)
  1. CONTRAVE [Suspect]
     Active Substance: BUPROPION HYDROCHLORIDE\NALTREXONE HYDROCHLORIDE
     Indication: Weight control
     Dosage: STRENGTH: 8/90 MG, 1 TABLET PER DAY
     Route: 048
     Dates: start: 20230815, end: 2023
  2. CONTRAVE [Suspect]
     Active Substance: BUPROPION HYDROCHLORIDE\NALTREXONE HYDROCHLORIDE
     Dosage: STRENGTH 8/90 MG, 3 TABLETS PER DAY, 2 IN THE MORNING AND 1 IN AFTERNOON
     Route: 048
     Dates: start: 2023, end: 2023
  3. CONTRAVE [Suspect]
     Active Substance: BUPROPION HYDROCHLORIDE\NALTREXONE HYDROCHLORIDE
     Dosage: STRENGTH 8/90 MG, UNKNOWN DOSE AND FREQUENCY (DOSE REDUCED)
     Route: 048
     Dates: start: 2023, end: 202309
  4. HYDROCHLOROTHIAZIDE [Concomitant]
     Active Substance: HYDROCHLOROTHIAZIDE
     Indication: Product used for unknown indication
     Dosage: 12.5 MG DAILY FOR 10 YEARS
  5. LORAZEPAM [Concomitant]
     Active Substance: LORAZEPAM
     Indication: Product used for unknown indication
     Dosage: 0.5 MG ALTERNATE
  6. ETODOLAC [Concomitant]
     Active Substance: ETODOLAC
     Indication: Product used for unknown indication
     Dosage: 20 YEARS
  7. VITAMINS [Concomitant]
     Active Substance: VITAMINS
     Indication: Product used for unknown indication
     Dosage: UNK

REACTIONS (7)
  - Genital hypoaesthesia [Recovered/Resolved]
  - Abdominal pain upper [Recovered/Resolved]
  - Constipation [Recovered/Resolved]
  - Therapeutic response unexpected [Unknown]
  - Patient dissatisfaction with treatment [Unknown]
  - Product administration error [Unknown]
  - Product colour issue [Unknown]

NARRATIVE: CASE EVENT DATE: 20230101
